FAERS Safety Report 25183216 (Version 1)
Quarter: 2025Q2

REPORT INFORMATION
  Report Type: Spontaneous
  Country: NO (occurrence: NO)
  Receive Date: 20250410
  Receipt Date: 20250410
  Transmission Date: 20250716
  Serious: Yes (Hospitalization, Other)
  Sender: BRISTOL MYERS SQUIBB
  Company Number: NO-BRISTOL-MYERS SQUIBB COMPANY-2025-049396

PATIENT
  Age: 81 Year
  Sex: Female

DRUGS (9)
  1. OPDIVO [Suspect]
     Active Substance: NIVOLUMAB
     Indication: Product used for unknown indication
     Dates: start: 20241119
  2. OPDIVO [Suspect]
     Active Substance: NIVOLUMAB
     Dates: start: 20241230
  3. OPDIVO [Suspect]
     Active Substance: NIVOLUMAB
     Dates: start: 20250120
  4. OPDIVO [Suspect]
     Active Substance: NIVOLUMAB
     Dates: start: 20250224
  5. YERVOY [Suspect]
     Active Substance: IPILIMUMAB
     Indication: Product used for unknown indication
     Dates: start: 20241119
  6. YERVOY [Suspect]
     Active Substance: IPILIMUMAB
     Dates: start: 20241230
  7. ELIQUIS [Concomitant]
     Active Substance: APIXABAN
     Indication: Product used for unknown indication
  8. CETIRIZINE [Concomitant]
     Active Substance: CETIRIZINE HYDROCHLORIDE
     Indication: Product used for unknown indication
  9. ACETAMINOPHEN [Concomitant]
     Active Substance: ACETAMINOPHEN
     Indication: Product used for unknown indication

REACTIONS (3)
  - Mastitis [Unknown]
  - Malignant neoplasm progression [Unknown]
  - Decreased appetite [Unknown]
